FAERS Safety Report 11216144 (Version 2)
Quarter: 2015Q3

REPORT INFORMATION
  Report Type: Report from Study
  Country: US (occurrence: US)
  Receive Date: 20150624
  Receipt Date: 20150707
  Transmission Date: 20151125
  Serious: No
  Sender: FDA-Public Use
  Company Number: US-GILEAD-2015-0159924

PATIENT
  Age: 73 Year
  Sex: Female

DRUGS (19)
  1. RANOLAZINE [Suspect]
     Active Substance: RANOLAZINE
     Indication: ANGINA PECTORIS
     Dosage: 500 MG, BID
     Route: 048
     Dates: start: 201405
  2. LASIX [Concomitant]
     Active Substance: FUROSEMIDE
  3. VITAMIN C [Concomitant]
     Active Substance: ASCORBIC ACID
  4. GARLIC                             /01570501/ [Concomitant]
  5. VITAMIN D                          /00107901/ [Concomitant]
     Active Substance: ERGOCALCIFEROL
  6. FISH OIL [Concomitant]
     Active Substance: FISH OIL
  7. VENLAFAXINE [Concomitant]
     Active Substance: VENLAFAXINE HYDROCHLORIDE
  8. CALCIUM [Concomitant]
     Active Substance: CALCIUM
  9. CINNAMON                           /01647501/ [Concomitant]
     Active Substance: CINNAMON
  10. NOVOLOG [Concomitant]
     Active Substance: INSULIN ASPART
  11. MULTIVITAMIN                       /00097801/ [Concomitant]
     Active Substance: VITAMINS
  12. CRESTOR [Concomitant]
     Active Substance: ROSUVASTATIN CALCIUM
  13. VITAMIN B12 [Concomitant]
     Active Substance: CYANOCOBALAMIN
  14. COENZYME Q10 [Concomitant]
     Active Substance: UBIDECARENONE
  15. COREG [Concomitant]
     Active Substance: CARVEDILOL
  16. METHIMAZOLE. [Concomitant]
     Active Substance: METHIMAZOLE
  17. ASA [Concomitant]
     Active Substance: ASPIRIN
  18. POTASSIUM [Concomitant]
     Active Substance: POTASSIUM
  19. PROLIA [Concomitant]
     Active Substance: DENOSUMAB

REACTIONS (4)
  - Blood glucose decreased [Recovering/Resolving]
  - Pain in extremity [Unknown]
  - Arthritis [Unknown]
  - Paraesthesia [Unknown]
